FAERS Safety Report 19228697 (Version 1)
Quarter: 2021Q2

REPORT INFORMATION
  Report Type: Spontaneous
  Country: US (occurrence: US)
  Receive Date: 20210506
  Receipt Date: 20210506
  Transmission Date: 20210717
  Serious: Yes (Other)
  Sender: FDA-Public Use
  Company Number: US-PFIZER INC-2021425343

PATIENT
  Age: 2 Year
  Sex: Female

DRUGS (1)
  1. LIDOCAINE HCL [Suspect]
     Active Substance: LIDOCAINE HYDROCHLORIDE
     Indication: BLADDER SPASM
     Dosage: UNK

REACTIONS (2)
  - Toxicity to various agents [Unknown]
  - Seizure [Recovered/Resolved]
